FAERS Safety Report 16667591 (Version 3)
Quarter: 2019Q4

REPORT INFORMATION
  Report Type: Report from Study
  Country: AU (occurrence: AU)
  Receive Date: 20190805
  Receipt Date: 20191105
  Transmission Date: 20200122
  Serious: Yes (Hospitalization)
  Sender: FDA-Public Use
  Company Number: PHHO2019AU007838

PATIENT
  Age: 60 Year
  Sex: Female
  Weight: 76.6 kg

DRUGS (8)
  1. VALTREX [Concomitant]
     Active Substance: VALACYCLOVIR HYDROCHLORIDE
     Indication: HERPES VIRUS INFECTION
     Dosage: 500 MG, QD
     Route: 065
     Dates: start: 2009
  2. VAGISTEN [Concomitant]
     Indication: HYSTERECTOMY
     Dosage: 10 MG, Q2W
     Route: 065
     Dates: start: 20150504
  3. OSTELIN VITAMIN D [Concomitant]
     Active Substance: CHOLECALCIFEROL
     Indication: VITAMIN D DECREASED
     Dosage: 25 UG, QD
     Route: 048
     Dates: start: 1995
  4. SIPONIMOD [Suspect]
     Active Substance: SIPONIMOD
     Indication: SECONDARY PROGRESSIVE MULTIPLE SCLEROSIS
     Dosage: UNK
     Route: 048
     Dates: start: 20140808, end: 20150207
  5. ENDEP [Concomitant]
     Active Substance: AMITRIPTYLINE HYDROCHLORIDE
     Indication: TRIGEMINAL NEURALGIA
     Dosage: 5 MG, NOCTE
     Route: 048
     Dates: start: 20170201
  6. BAF312 [Suspect]
     Active Substance: SIPONIMOD
     Indication: SECONDARY PROGRESSIVE MULTIPLE SCLEROSIS
     Dosage: 2 MG, QD
     Route: 048
     Dates: start: 20170207
  7. PROLIA [Concomitant]
     Active Substance: DENOSUMAB
     Indication: OSTEOPOROSIS
     Dosage: 60 MG, 6 MONTHLY
     Route: 058
     Dates: start: 20170613
  8. GESTER [Concomitant]
     Active Substance: PROGESTERONE
     Indication: HYPERLIPIDAEMIA
     Dosage: 5 MG, QD
     Route: 048
     Dates: start: 20190201

REACTIONS (1)
  - Pyelonephritis [Recovered/Resolved]

NARRATIVE: CASE EVENT DATE: 20190630
